FAERS Safety Report 7671410-4 (Version None)
Quarter: 2011Q3

REPORT INFORMATION
  Report Type: 
  Country: None (occurrence: None)
  Receive Date: 20110809
  Receipt Date: 20110726
  Transmission Date: 20111222
  Serious: Yes (Other)
  Sender: FDA-Public Use
  Company Number: US-ELI_LILLY_AND_COMPANY-US201107007520

PATIENT
  Sex: Female

DRUGS (5)
  1. ZONEGRAN [Concomitant]
  2. HYDROCODONE [Concomitant]
  3. ZYPREXA [Suspect]
     Indication: HALLUCINATION
     Dosage: 20 MG, EACH EVENING
     Dates: start: 20090101
  4. BACLOFEN [Concomitant]
  5. ATIVAN [Concomitant]

REACTIONS (1)
  - GASTROINTESTINAL NEOPLASM [None]
